FAERS Safety Report 16688303 (Version 1)
Quarter: 2019Q3

REPORT INFORMATION
  Report Type: Spontaneous
  Country: US (occurrence: US)
  Receive Date: 20190809
  Receipt Date: 20190809
  Transmission Date: 20191004
  Serious: Yes (Other)
  Sender: FDA-Public Use
  Company Number: US-PFIZER INC-2019339167

PATIENT
  Sex: Male

DRUGS (1)
  1. VIAGRA [Suspect]
     Active Substance: SILDENAFIL CITRATE
     Dosage: 17 DF, UNK (17 OF THE VIAGRA PILLS)

REACTIONS (4)
  - Dysuria [Unknown]
  - Painful erection [Unknown]
  - Intentional overdose [Unknown]
  - Erection increased [Unknown]

NARRATIVE: CASE EVENT DATE: 201907
